FAERS Safety Report 5082394-X (Version None)
Quarter: 2006Q3

REPORT INFORMATION
  Report Type: 
  Country: None (occurrence: None)
  Receive Date: 20060817
  Receipt Date: 20050516
  Transmission Date: 20061208
  Serious: Yes (Other)
  Sender: FDA-Public Use
  Company Number: US-GLAXOSMITHKLINE-A0559051A

PATIENT
  Sex: Female
  Weight: 54.5 kg

DRUGS (14)
  1. PAXIL [Suspect]
     Indication: DEPRESSION
     Route: 048
     Dates: start: 19971201
  2. PAXIL [Suspect]
     Dosage: 3MG AS DIRECTED
     Route: 048
  3. PAROXETINE HYDROCHLORIDE [Suspect]
     Indication: DEPRESSION
     Dosage: 10MG UNKNOWN
     Route: 048
  4. AVINZA [Suspect]
     Indication: PAIN
     Route: 048
  5. KLONOPIN [Concomitant]
     Indication: ANXIETY
     Route: 048
  6. OXYCODONE HCL [Concomitant]
     Route: 048
  7. STRATTERA [Concomitant]
  8. ESTROGENS SOL/INJ [Concomitant]
  9. CELEXA [Concomitant]
  10. VIOXX [Concomitant]
  11. ROXANOL [Concomitant]
  12. CELEBREX [Concomitant]
  13. MORPHINE [Concomitant]
     Route: 048
     Dates: start: 20030812
  14. OGEN [Concomitant]

REACTIONS (9)
  - ANXIETY [None]
  - DEPRESSION [None]
  - DISORIENTATION [None]
  - DIZZINESS [None]
  - DRUG WITHDRAWAL SYNDROME [None]
  - FALL [None]
  - INSOMNIA [None]
  - LOSS OF CONSCIOUSNESS [None]
  - NAUSEA [None]
